FAERS Safety Report 7911191-X (Version None)
Quarter: 2011Q4

REPORT INFORMATION
  Report Type: 
  Country: None (occurrence: None)
  Receive Date: 20111109
  Receipt Date: 20111027
  Transmission Date: 20120403
  Serious: Yes (Other)
  Sender: FDA-Public Use
  Company Number: 2011MA015970

PATIENT
  Age: 70 Year
  Sex: Female

DRUGS (5)
  1. SULPHADIMIDINE [Concomitant]
  2. LOSARTAN POTASSIUM [Suspect]
     Indication: HYPERTENSION
     Dosage: 25 MG
  3. LISINOPRIL [Suspect]
     Indication: ATRIAL FIBRILLATION
  4. VERAPAMIL HCL [Suspect]
     Indication: HYPERTENSION
  5. MEPERIDINE HCL [Concomitant]

REACTIONS (7)
  - COUGH [None]
  - FIBROMYALGIA [None]
  - ARTHRALGIA [None]
  - ABDOMINAL PAIN [None]
  - DIARRHOEA [None]
  - MUSCULOSKELETAL PAIN [None]
  - URINARY INCONTINENCE [None]
